FAERS Safety Report 9758367 (Version 2)
Quarter: 2013Q4

REPORT INFORMATION
  Report Type: Spontaneous
  Country: FR (occurrence: FR)
  Receive Date: 20131216
  Receipt Date: 20131216
  Transmission Date: 20140711
  Serious: Yes (Hospitalization)
  Sender: FDA-Public Use
  Company Number: FR-PFIZER INC-2013351614

PATIENT
  Age: 89 Year
  Sex: Female

DRUGS (6)
  1. AMIODARONE HCL [Suspect]
     Indication: ATRIAL FIBRILLATION
     Dosage: 200 MG 5 DAYS WEEKLY
     Route: 065
  2. AMIODARONE HCL [Interacting]
     Indication: HYPERTENSION
  3. DABIGATRAN [Interacting]
     Indication: ATRIAL FIBRILLATION
     Dosage: 110 MG, 2X/DAY
     Route: 065
  4. DABIGATRAN [Interacting]
     Indication: HYPERTENSION
  5. LERCANIDIPINE [Concomitant]
     Indication: ATRIAL FIBRILLATION
     Dosage: 10 MG A DAY
  6. LERCANIDIPINE [Concomitant]
     Indication: HYPERTENSION

REACTIONS (4)
  - Drug interaction [Unknown]
  - Rectal haemorrhage [Recovered/Resolved]
  - Melaena [Recovered/Resolved]
  - Anaemia [Recovered/Resolved]
